FAERS Safety Report 4818555-1 (Version None)
Quarter: 2005Q4

REPORT INFORMATION
  Report Type: 
  Country: None (occurrence: None)
  Receive Date: 20051031
  Receipt Date: 20051020
  Transmission Date: 20060501
  Serious: Yes (Other)
  Sender: FDA-Public Use
  Company Number: 235032K05USA

PATIENT
  Age: 62 Year
  Sex: Female

DRUGS (1)
  1. REBIF [Suspect]
     Indication: MULTIPLE SCLEROSIS
     Dosage: 44 MCG, 3 IN 1 WEEKS, SUBCUTANEOUS
     Route: 058
     Dates: start: 20041103

REACTIONS (9)
  - BLOOD IRON DECREASED [None]
  - FATIGUE [None]
  - GASTRIC HAEMORRHAGE [None]
  - GASTRIC MUCOSAL LESION [None]
  - HAEMATOCRIT DECREASED [None]
  - INJECTION SITE IRRITATION [None]
  - INJECTION SITE PAIN [None]
  - INJECTION SITE REACTION [None]
  - SERUM FERRITIN DECREASED [None]
